FAERS Safety Report 25758113 (Version 1)
Quarter: 2025Q3

REPORT INFORMATION
  Report Type: Spontaneous
  Country: IN (occurrence: US)
  Receive Date: 20250903
  Receipt Date: 20250903
  Transmission Date: 20251020
  Serious: No
  Sender: CIPLA
  Company Number: IN-CIPLA LTD.-2024US13493

PATIENT

DRUGS (4)
  1. DICLOFENAC [Suspect]
     Active Substance: DICLOFENAC
     Indication: Arthritis
     Route: 061
  2. DIAZEPAM [Concomitant]
     Active Substance: DIAZEPAM
     Indication: Hypertension
     Route: 065
  3. GABAPENTIN [Concomitant]
     Active Substance: GABAPENTIN
     Indication: Pain in extremity
     Dosage: 300 MILLIGRAM, TID (SHE DID NOT KNOW THE MANUFACTURER NAME, BUT THE CAPSULES WERE LIGHT ORANGE IN CO
     Route: 065
  4. SIMVASTATIN [Concomitant]
     Active Substance: SIMVASTATIN
     Indication: Blood cholesterol
     Route: 065

REACTIONS (4)
  - Body height decreased [Unknown]
  - Prescription drug used without a prescription [Unknown]
  - Off label use [Unknown]
  - Rash [Not Recovered/Not Resolved]

NARRATIVE: CASE EVENT DATE: 20240301
